FAERS Safety Report 22020580 (Version 1)
Quarter: 2023Q1

REPORT INFORMATION
  Report Type: Spontaneous
  Country: US (occurrence: US)
  Receive Date: 20230222
  Receipt Date: 20230222
  Transmission Date: 20230418
  Serious: No
  Sender: FDA-Public Use
  Company Number: US-INCYTE CORPORATION-2023IN001566

PATIENT

DRUGS (2)
  1. JAKAFI [Suspect]
     Active Substance: RUXOLITINIB
     Indication: Lung neoplasm malignant
     Dosage: 5 MILLIGRAM, BID
     Route: 048
     Dates: start: 202210
  2. JAKAFI [Suspect]
     Active Substance: RUXOLITINIB
     Indication: Chronic lymphocytic leukaemia

REACTIONS (3)
  - Diarrhoea [Unknown]
  - Fatigue [Unknown]
  - Off label use [Unknown]

NARRATIVE: CASE EVENT DATE: 20221001
